FAERS Safety Report 4988215-5 (Version None)
Quarter: 2006Q2

REPORT INFORMATION
  Report Type: 
  Country: None (occurrence: None)
  Receive Date: 20060425
  Receipt Date: 20060413
  Transmission Date: 20061013
  Serious: Yes (Hospitalization, Other)
  Sender: FDA-Public Use
  Company Number: 2006050717

PATIENT
  Age: 89 Year
  Sex: Male

DRUGS (5)
  1. CELEBREX [Suspect]
     Indication: ARTHRITIS
     Dosage: UNKNOWN (200 MG, UNKNOWN), UNKNOWN
     Route: 065
  2. OMEPRAZOLE [Concomitant]
  3. FUROSEMIDE [Concomitant]
  4. INSULIN GLARGINE (INSULIN GLARGINE) [Concomitant]
  5. AMIODARONE HYDROCHLORIDE [Concomitant]

REACTIONS (3)
  - CARDIOVASCULAR DISORDER [None]
  - DRUG INTOLERANCE [None]
  - HEMIPLEGIA [None]
